FAERS Safety Report 13776703 (Version 4)
Quarter: 2017Q3

REPORT INFORMATION
  Report Type: Spontaneous
  Country: US (occurrence: US)
  Receive Date: 20170721
  Receipt Date: 20170828
  Transmission Date: 20171127
  Serious: Yes (Other)
  Sender: FDA-Public Use
  Company Number: US-PFIZER INC-2017314370

PATIENT
  Age: 59 Year
  Sex: Male
  Weight: 107.5 kg

DRUGS (1)
  1. LYRICA [Suspect]
     Active Substance: PREGABALIN
     Indication: NEUROPATHY PERIPHERAL
     Dosage: 150 MG, 2X/DAY
     Route: 048
     Dates: start: 2016, end: 201707

REACTIONS (7)
  - Burning sensation [Unknown]
  - Cerebrovascular accident [Unknown]
  - Memory impairment [Unknown]
  - Impaired work ability [Unknown]
  - Blindness [Unknown]
  - Back disorder [Unknown]
  - Gangrene [Unknown]

NARRATIVE: CASE EVENT DATE: 201707
